FAERS Safety Report 18275446 (Version 1)
Quarter: 2020Q3

REPORT INFORMATION
  Report Type: Spontaneous
  Country: US (occurrence: US)
  Receive Date: 20200916
  Receipt Date: 20200916
  Transmission Date: 20201103
  Serious: Yes (Hospitalization)
  Sender: FDA-Public Use
  Company Number: US-LEADIANT BIOSCIENCES INC-2020STPI000282

PATIENT
  Age: 37 Year
  Sex: Female

DRUGS (5)
  1. MATULANE [Suspect]
     Active Substance: PROCARBAZINE HYDROCHLORIDE
     Indication: HODGKIN^S DISEASE NODULAR SCLEROSIS
     Dosage: UNK
     Dates: start: 20200604
  2. ETOPOSIDE. [Suspect]
     Active Substance: ETOPOSIDE
  3. CYTOXAN [Suspect]
     Active Substance: CYCLOPHOSPHAMIDE
  4. PREDNISONE. [Concomitant]
     Active Substance: PREDNISONE
  5. NEULASTA [Concomitant]
     Active Substance: PEGFILGRASTIM

REACTIONS (2)
  - Febrile neutropenia [Recovered/Resolved]
  - Mucosal inflammation [Recovered/Resolved]

NARRATIVE: CASE EVENT DATE: 202006
